FAERS Safety Report 17662597 (Version 1)
Quarter: 2020Q2

REPORT INFORMATION
  Report Type: Spontaneous
  Country: NL (occurrence: NL)
  Receive Date: 20200413
  Receipt Date: 20200413
  Transmission Date: 20200713
  Serious: Yes (Other)
  Sender: FDA-Public Use
  Company Number: NL-MYLANLABS-2020M1037230

PATIENT
  Sex: Male
  Weight: 4.2 kg

DRUGS (6)
  1. ENTYVIO [Suspect]
     Active Substance: VEDOLIZUMAB
     Indication: COLITIS ULCERATIVE
     Dosage: OPLAADSCHEMA 300 MG IN WEER 0,2,6
     Route: 064
  2. PREDNISON [Concomitant]
     Active Substance: PREDNISONE
     Dosage: TABLET, 5 MG (MILLIGRAM)
  3. AZATHIOPRINE. [Suspect]
     Active Substance: AZATHIOPRINE
     Indication: COLITIS ULCERATIVE
     Dosage: 1D2STUK, 50 MG
     Route: 064
     Dates: start: 20180313
  4. ENTYVIO [Suspect]
     Active Substance: VEDOLIZUMAB
     Dosage: DAARNA ELKE 2 WEKEN 600 MG
  5. MOVICOLON [Concomitant]
     Active Substance: POLYETHYLENE GLYCOL 3350\POTASSIUM CHLORIDE\SODIUM BICARBONATE\SODIUM CHLORIDE
     Dosage: POEDER VOOR DRANK
  6. AZATHIOPRINE. [Suspect]
     Active Substance: AZATHIOPRINE
     Dosage: 1D50 MG, 1E 3 MAANDEN ZWANGERSCHAP

REACTIONS (2)
  - Neutropenia neonatal [Unknown]
  - Foetal exposure during pregnancy [Recovered/Resolved]
